FAERS Safety Report 5656025-1 (Version None)
Quarter: 2008Q1

REPORT INFORMATION
  Report Type: 
  Country: None (occurrence: None)
  Receive Date: 20080307
  Receipt Date: 20080228
  Transmission Date: 20080703
  Serious: Yes (Hospitalization, Other)
  Sender: FDA-Public Use
  Company Number: US-PFIZER INC-2008018875

PATIENT
  Sex: Female
  Weight: 53.5 kg

DRUGS (5)
  1. LIPITOR [Suspect]
     Indication: BLOOD CHOLESTEROL INCREASED
  2. CHANTIX [Suspect]
     Indication: EX-SMOKER
     Dates: start: 20080101, end: 20080226
  3. PLAVIX [Concomitant]
  4. ASPIRIN [Concomitant]
  5. BISOPROLOL FUMARATE [Concomitant]

REACTIONS (10)
  - ANGIOPATHY [None]
  - ARTERIAL DISORDER [None]
  - ARTERIAL OCCLUSIVE DISEASE [None]
  - BLOOD CHOLESTEROL ABNORMAL [None]
  - CHEST PAIN [None]
  - DECREASED APPETITE [None]
  - DYSPNOEA [None]
  - MYOCARDIAL INFARCTION [None]
  - NAUSEA [None]
  - VOMITING [None]
